FAERS Safety Report 4839390-4 (Version None)
Quarter: 2005Q4

REPORT INFORMATION
  Report Type: 
  Country: None (occurrence: None)
  Receive Date: 20051129
  Receipt Date: 20050307
  Transmission Date: 20060501
  Serious: No
  Sender: FDA-Public Use
  Company Number: US-GLAXOSMITHKLINE-A0548624A

PATIENT
  Sex: Male

DRUGS (9)
  1. WELLBUTRIN SR [Suspect]
     Indication: DEPRESSION
     Dosage: 200MG TWICE PER DAY
     Route: 048
     Dates: start: 20020101
  2. STRATTERA [Suspect]
     Indication: DRUG USE FOR UNKNOWN INDICATION
     Route: 065
  3. REMERON [Concomitant]
  4. RISPERDAL [Concomitant]
  5. ALLEGRA [Concomitant]
  6. PAXIL [Concomitant]
  7. ADDERALL 10 [Concomitant]
  8. QVAR [Concomitant]
  9. ALBUTEROL [Concomitant]

REACTIONS (4)
  - BLOOD PRESSURE INCREASED [None]
  - DISTURBANCE IN ATTENTION [None]
  - FATIGUE [None]
  - HEART RATE INCREASED [None]
